FAERS Safety Report 6740151-X (Version None)
Quarter: 2010Q2

REPORT INFORMATION
  Report Type: 
  Country: None (occurrence: None)
  Receive Date: 20100525
  Receipt Date: 20100519
  Transmission Date: 20101027
  Serious: Yes (Hospitalization, Disabling)
  Sender: FDA-Public Use
  Company Number: A0783347A

PATIENT
  Age: 58 Year
  Sex: Male
  Weight: 156.8 kg

DRUGS (5)
  1. AVANDIA [Suspect]
     Indication: DIABETES MELLITUS
     Dosage: 8MG TWICE PER DAY
     Route: 048
     Dates: end: 20070801
  2. AVANDAMET [Suspect]
     Route: 048
  3. QUINAPRIL [Concomitant]
  4. HCTZ [Concomitant]
  5. ACCUPRIL [Concomitant]

REACTIONS (1)
  - CEREBROVASCULAR ACCIDENT [None]
